FAERS Safety Report 9164163 (Version 1)
Quarter: 2013Q1

REPORT INFORMATION
  Report Type: Spontaneous
  Country: US (occurrence: None)
  Receive Date: 20130313
  Receipt Date: 20130313
  Transmission Date: 20140127
  Serious: Yes (Hospitalization)
  Sender: FDA-Public Use
  Company Number: None

PATIENT
  Age: 74 Year
  Sex: Male
  Weight: 68 kg

DRUGS (13)
  1. DALTEPARIN [Suspect]
     Indication: THROMBOSIS PROPHYLAXIS
     Dosage: PRIOR TO ADMISSION
  2. CLOPIDOGREL\SALICYLIC ACID [Suspect]
     Indication: CORONARY ARTERY DISEASE
     Dosage: PRIOR TO ADMISSION
     Route: 048
  3. CARVEDILOL [Concomitant]
  4. INSULIN DETEMIR [Concomitant]
  5. ONDANSETRON [Concomitant]
  6. LOPERAMIDE [Concomitant]
  7. SLIDING SCALE INSULIN SUBQ [Concomitant]
  8. LACTOBACILLUS [Concomitant]
  9. MEGESTROL [Concomitant]
  10. PSYLLIUM [Concomitant]
  11. SERTRALINE [Concomitant]
  12. SIMVASTATIN [Concomitant]
  13. RANITIDINE [Concomitant]

REACTIONS (4)
  - Haemorrhage [None]
  - Haemoglobin decreased [None]
  - Hypotension [None]
  - Metabolic acidosis [None]
